FAERS Safety Report 18565248 (Version 1)
Quarter: 2020Q4

REPORT INFORMATION
  Report Type: Spontaneous
  Country: US (occurrence: US)
  Receive Date: 20201005
  Receipt Date: 20201005
  Transmission Date: 20210114
  Serious: Yes (Death)
  Sender: FDA-Public Use
  Company Number: None

PATIENT
  Age: 6 Decade
  Sex: Male

DRUGS (5)
  1. LOPINAVIR-RITONAVIR [Suspect]
     Active Substance: LOPINAVIR\RITONAVIR
  2. METHYLPREDNISOLONE. [Suspect]
     Active Substance: METHYLPREDNISOLONE
     Route: 042
  3. RECOMBINANT HUMAN INTERFERON BETA-2B [Suspect]
     Active Substance: INTERFERON BETA
     Dosage: ?          OTHER DOSE:5 MILLION IU/;?
     Route: 042
  4. MOXIFLOXACIN. [Suspect]
     Active Substance: MOXIFLOXACIN
     Route: 042
  5. UMIFENOVIR. [Suspect]
     Active Substance: UMIFENOVIR
     Indication: COVID-19
     Dates: start: 2020

REACTIONS (8)
  - Superinfection [None]
  - Respiratory failure [None]
  - Coma [None]
  - Multiple organ dysfunction syndrome [None]
  - Cardio-respiratory arrest [None]
  - Product use in unapproved indication [None]
  - Renal failure [None]
  - Lung opacity [None]
